FAERS Safety Report 8002814-8 (Version None)
Quarter: 2011Q4

REPORT INFORMATION
  Report Type: 
  Country: None (occurrence: None)
  Receive Date: 20111222
  Receipt Date: 20101102
  Transmission Date: 20120403
  Serious: No
  Sender: FDA-Public Use
  Company Number: US-GLAXOSMITHKLINE-A0890288A

PATIENT
  Age: 86 Year
  Sex: Male

DRUGS (13)
  1. TAMSULOSIN HCL [Suspect]
  2. VITAMIN B-12 [Concomitant]
  3. XOPENEX [Concomitant]
     Route: 055
  4. VITAMIN D [Concomitant]
  5. PRILOSEC [Concomitant]
  6. VITAMIN C [Concomitant]
  7. AVODART [Suspect]
     Indication: URINE OUTPUT DECREASED
     Dosage: .5MG PER DAY
     Route: 048
     Dates: start: 20101028, end: 20101030
  8. PROVENTIL [Concomitant]
  9. PREDNISONE TAB [Concomitant]
  10. HYDROCHLOROTHIAZIDE [Concomitant]
  11. POTASSIUM [Concomitant]
  12. VITAMIN E [Concomitant]
  13. COMBIVENT [Concomitant]

REACTIONS (2)
  - DYSURIA [None]
  - BLOOD PRESSURE DECREASED [None]
